FAERS Safety Report 8127434-6 (Version None)
Quarter: 2011Q4

REPORT INFORMATION
  Report Type: 
  Country: None (occurrence: None)
  Receive Date: 20111227
  Receipt Date: 20111118
  Transmission Date: 20120403
  Serious: No
  Sender: FDA-Public Use
  Company Number: PHEH2011US009710

PATIENT
  Age: 46 Year
  Sex: Female

DRUGS (13)
  1. GILENYA [Suspect]
     Dosage: 0.5 MG, QD, ORAL
     Route: 048
  2. CALCIUM WITH VITAMIN D (CALCIUM PHOSPHATE, CALCIUM SODIUM LACTATE, ERG [Concomitant]
  3. AMLODIPINE BESYLATE [Concomitant]
  4. DIAZEPAM [Concomitant]
  5. BUTALBITAL ACETAMINOPHEN AND CAFFEINE [Suspect]
     Indication: HEADACHE
     Dosage: PRN
  6. VENLAFAXINE [Concomitant]
  7. VITAMIN D [Concomitant]
  8. HYDROXYZINE (HYDROXYZINE) CREAM [Concomitant]
  9. NAMENDA [Concomitant]
  10. TYLENOL PM (DIPHENHYDRAMINE, PARACETAMOL) [Concomitant]
  11. PROMETHAZINE [Suspect]
     Indication: NAUSEA
     Dosage: 25 MG, PRN
  12. PRILOSEC [Concomitant]
  13. BENADRYL (DEXTROMETHORPHAN HYDROBROMIDE, DIPHENHYDRAMINE HYDROCHLORIDE [Concomitant]

REACTIONS (4)
  - NAUSEA [None]
  - HEADACHE [None]
  - DYSPHEMIA [None]
  - FATIGUE [None]
